FAERS Safety Report 7090439-0 (Version None)
Quarter: 2010Q4

REPORT INFORMATION
  Report Type: 
  Country: None (occurrence: None)
  Receive Date: 20101109
  Receipt Date: 20100401
  Transmission Date: 20110411
  Serious: Yes (Hospitalization)
  Sender: FDA-Public Use
  Company Number: US-BAYER-201016365NA

PATIENT
  Age: 18 Year
  Sex: Female
  Weight: 125 kg

DRUGS (22)
  1. YASMIN [Suspect]
     Indication: CONTRACEPTION
     Dosage: PFS: 2006-2008. MEDICAL RECORDS: 19-APR-07 TO 09-SEP-07. PHARMACY RECORDS: 01-APR-00 TO 09-FEB-10B
     Route: 048
  2. YAZ [Suspect]
     Indication: PRODUCT USED FOR UNKNOWN INDICATION
     Dosage: PFS: 2006-2008.
     Route: 048
  3. PREDNISONE [Concomitant]
     Route: 065
  4. LISINOPRIL [Concomitant]
     Dosage: PHARMACY RECORDS: 24-APR-20008
     Route: 065
  5. DITROPAN [Concomitant]
     Route: 065
  6. METHYLDOPA [Concomitant]
     Indication: HYPERTENSION
     Route: 065
     Dates: start: 20090701
  7. ASMANEX TWISTHALER [Concomitant]
     Indication: ASTHMA
     Route: 065
     Dates: start: 20090901
  8. NSAID [Concomitant]
     Route: 065
  9. HYDROCODONE BITARTRATE + ACETAMINOPHEN [Concomitant]
     Dosage: PHARMACY RECORDS: 5-500. 28-FEB-2008.
  10. UNASYN ADV [Concomitant]
     Route: 042
  11. ZOFRAN [Concomitant]
     Route: 065
  12. ONDANSETRON [Concomitant]
     Route: 065
  13. PERCOCET [Concomitant]
     Route: 065
  14. PROTONIX [Concomitant]
     Route: 042
  15. DEMEROL [Concomitant]
     Route: 065
  16. MEPERIDINE HCL [Concomitant]
     Route: 042
  17. TORADOL [Concomitant]
     Route: 065
  18. METOROLAC [Concomitant]
     Dosage: 27-FEB-2008
     Route: 042
  19. VICODIN [Concomitant]
     Indication: PAIN
     Route: 065
  20. DEXTROSE 5%/0.45% SODIUM CHOLIDE [Concomitant]
     Route: 042
  21. SODIUM CHLORIDE 0.9% [Concomitant]
     Route: 065
  22. D5 LACTATED RINGERS [Concomitant]
     Route: 065

REACTIONS (6)
  - ABDOMINAL PAIN UPPER [None]
  - CHEST PAIN [None]
  - CHOLECYSTITIS CHRONIC [None]
  - CHOLELITHIASIS [None]
  - JAUNDICE CHOLESTATIC [None]
  - NAUSEA [None]
